FAERS Safety Report 8838826 (Version 2)
Quarter: 2018Q1

REPORT INFORMATION
  Report Type: Spontaneous
  Country: IT (occurrence: IT)
  Receive Date: 20121014
  Receipt Date: 20180327
  Transmission Date: 20180509
  Serious: Yes (Hospitalization)
  Sender: FDA-Public Use
  Company Number: IT-TEVA-363399ISR

PATIENT
  Age: 31 Year
  Sex: Male

DRUGS (3)
  1. DIAZEPAM. [Suspect]
     Active Substance: DIAZEPAM
     Dosage: 30 GTT DAILY;
     Route: 048
     Dates: start: 20120701, end: 20120820
  2. TAVOR (LORAZEPAM) [Suspect]
     Active Substance: LORAZEPAM
     Dosage: 1 MILLIGRAM DAILY;
     Route: 048
     Dates: start: 20120701, end: 20120820
  3. ZYPREXA [Suspect]
     Active Substance: OLANZAPINE
     Dosage: 15 MILLIGRAM DAILY;
     Route: 048
     Dates: start: 20120601, end: 20120820

REACTIONS (4)
  - Sopor [Recovering/Resolving]
  - Drug abuse [Recovering/Resolving]
  - Hyperthermia [Recovering/Resolving]
  - Rhabdomyolysis [Recovering/Resolving]

NARRATIVE: CASE EVENT DATE: 20120820
